FAERS Safety Report 11642779 (Version 4)
Quarter: 2018Q2

REPORT INFORMATION
  Report Type: Report from Study
  Country: FR (occurrence: FR)
  Receive Date: 20151020
  Receipt Date: 20180419
  Transmission Date: 20180711
  Serious: Yes (Other)
  Sender: FDA-Public Use
  Company Number: FR-ROCHE-1648321

PATIENT
  Age: 77 Year
  Sex: Female

DRUGS (15)
  1. RANIBIZUMAB. [Suspect]
     Active Substance: RANIBIZUMAB
     Dosage: IN LEFT EYE
     Route: 050
     Dates: start: 20140730, end: 20140730
  2. RANIBIZUMAB. [Suspect]
     Active Substance: RANIBIZUMAB
     Dosage: IN LEFT EYE
     Route: 050
     Dates: start: 20150227
  3. RANIBIZUMAB. [Suspect]
     Active Substance: RANIBIZUMAB
     Dosage: IN LEFT EYE
     Route: 050
     Dates: start: 20140702
  4. RILMENIDINE [Concomitant]
     Active Substance: RILMENIDINE
  5. RANIBIZUMAB. [Suspect]
     Active Substance: RANIBIZUMAB
     Dosage: IN LEFT EYE
     Route: 050
     Dates: start: 20140604
  6. RANIBIZUMAB. [Suspect]
     Active Substance: RANIBIZUMAB
     Dosage: IN LEFT EYE
     Route: 050
     Dates: start: 20140903
  7. LOSARTAN. [Concomitant]
     Active Substance: LOSARTAN
  8. DIAMICRON [Concomitant]
     Active Substance: GLICLAZIDE
  9. INSULIN [Concomitant]
     Active Substance: INSULIN NOS
  10. VELMETIA [Concomitant]
     Active Substance: METFORMIN\SITAGLIPTIN
  11. LEXOMIL [Concomitant]
     Active Substance: BROMAZEPAM
     Route: 065
     Dates: start: 201411
  12. RANIBIZUMAB. [Suspect]
     Active Substance: RANIBIZUMAB
     Indication: DIABETIC RETINAL OEDEMA
     Dosage: IN RIGHT EYE
     Route: 050
     Dates: start: 20140305
  13. RANIBIZUMAB. [Suspect]
     Active Substance: RANIBIZUMAB
     Route: 050
     Dates: start: 20150424, end: 20150424
  14. LOXOPROFEN SODIUM [Concomitant]
     Active Substance: LOXOPROFEN SODIUM
     Route: 065
     Dates: start: 201411
  15. VITABACT [Concomitant]
     Active Substance: PICLOXYDINE DIHYDROCHLORIDE
     Route: 065
     Dates: start: 201411

REACTIONS (7)
  - Dementia Alzheimer^s type [Unknown]
  - Memory impairment [Unknown]
  - Blood pressure systolic increased [Unknown]
  - Vitreous haemorrhage [Recovered/Resolved]
  - Extranodal marginal zone B-cell lymphoma (MALT type) [Unknown]
  - Eye paraesthesia [Unknown]
  - Fatigue [Unknown]

NARRATIVE: CASE EVENT DATE: 20140901
